FAERS Safety Report 8102728-9 (Version None)
Quarter: 2012Q1

REPORT INFORMATION
  Report Type: 
  Country: None (occurrence: None)
  Receive Date: 20120126
  Receipt Date: 20120116
  Transmission Date: 20120608
  Serious: Yes (Death, Life-Threatening)
  Sender: FDA-Public Use
  Company Number: WAES 1112DEU00031

PATIENT
  Age: 65 Year
  Sex: Male

DRUGS (38)
  1. CANCIDAS [Suspect]
     Indication: BRONCHOPULMONARY ASPERGILLOSIS
     Dosage: 70 MG/DAILY;IV, 50 MG/DAILY;IV, 50 MG/DAILY;IV
     Route: 042
     Dates: start: 20090508, end: 20090508
  2. CANCIDAS [Suspect]
     Indication: BRONCHOPULMONARY ASPERGILLOSIS
     Dosage: 70 MG/DAILY;IV, 50 MG/DAILY;IV, 50 MG/DAILY;IV
     Route: 042
     Dates: start: 20090509, end: 20090626
  3. CANCIDAS [Suspect]
     Indication: BRONCHOPULMONARY ASPERGILLOSIS
     Dosage: 70 MG/DAILY;IV, 50 MG/DAILY;IV, 50 MG/DAILY;IV
     Route: 042
     Dates: start: 20090704, end: 20090710
  4. ACETAMINOPHEN [Concomitant]
  5. AMLODIPINE [Concomitant]
  6. CYCLOSPORINE [Concomitant]
  7. DEXAMETHASONE [Concomitant]
  8. DOPAMINE HCL [Concomitant]
  9. DRONABINOL [Concomitant]
  10. SERTRALINE HYDROCHLORIDE [Concomitant]
  11. SULFAMETHOXAZOLE AND TRIMETHOPRIM [Concomitant]
  12. ARANESP [Concomitant]
  13. NOVALGIN [Concomitant]
  14. ACYCLOVIR [Concomitant]
  15. AMPHOTERICIN B [Concomitant]
  16. BROMAZEPAM [Concomitant]
  17. HEPARIN [Concomitant]
  18. NITRENDIPINE [Concomitant]
  19. PIPERACILLIN [Concomitant]
  20. RASBURICASE [Concomitant]
  21. TORSEMIDE [Concomitant]
  22. METOCLOPRAMIDE [Concomitant]
  23. PREGABALIN [Concomitant]
  24. AMANTADINE HCL [Concomitant]
  25. CEFTAZIDIME [Concomitant]
  26. CETIRIZINE HCL [Concomitant]
  27. FUROSEMIDE [Concomitant]
  28. TETRAZEPAM [Concomitant]
  29. LAXOBERAL [Concomitant]
  30. CEFTRIAXONE SODIUM [Concomitant]
  31. MORPHINE [Concomitant]
  32. PANTOPRAZOLE [Concomitant]
  33. PREDNISONE TAB [Concomitant]
  34. TAZOBACTAM [Concomitant]
  35. LINEZOLID [Concomitant]
  36. VANCOMYCIN [Concomitant]
  37. GRANISETRON [Concomitant]
  38. VORICONAZOLE [Concomitant]

REACTIONS (2)
  - CARDIOPULMONARY FAILURE [None]
  - PNEUMONIA ASPIRATION [None]
